FAERS Safety Report 13543820 (Version 13)
Quarter: 2018Q3

REPORT INFORMATION
  Report Type: Spontaneous
  Country: JP (occurrence: JP)
  Receive Date: 20170515
  Receipt Date: 20180719
  Transmission Date: 20181010
  Serious: Yes (Hospitalization)
  Sender: FDA-Public Use
  Company Number: JP-009507513-1705JPN000684J

PATIENT
  Age: 70 Year
  Sex: Male
  Weight: 46 kg

DRUGS (1)
  1. KEYTRUDA [Suspect]
     Active Substance: PEMBROLIZUMAB
     Indication: LUNG ADENOCARCINOMA
     Dosage: 200 MG, Q3W
     Route: 041
     Dates: start: 20170403, end: 20170425

REACTIONS (2)
  - Malaise [Recovering/Resolving]
  - Herpes zoster [Recovered/Resolved]

NARRATIVE: CASE EVENT DATE: 20170425
